FAERS Safety Report 5275124-X (Version None)
Quarter: 2007Q1

REPORT INFORMATION
  Report Type: 
  Country: None (occurrence: None)
  Receive Date: 20070326
  Receipt Date: 20070314
  Transmission Date: 20070707
  Serious: Yes (Hospitalization, Other)
  Sender: FDA-Public Use
  Company Number: PHRM2007FR01052

PATIENT
  Age: 43 Year
  Sex: Female
  Weight: 110 kg

DRUGS (12)
  1. ZOMETA [Suspect]
     Indication: METASTASES TO BONE
     Dosage: 4 MG, QMO
     Dates: start: 20050624, end: 20061120
  2. ROFERON-A [Suspect]
     Indication: RENAL CANCER METASTATIC
     Dates: end: 20051201
  3. RADIOTHERAPY [Suspect]
     Indication: RENAL CANCER METASTATIC
     Dosage: 30 GY IN 10 FRACTIONS
     Dates: start: 20050624, end: 20050707
  4. FARLUTAL [Suspect]
     Dates: start: 20051201
  5. AVASTIN [Suspect]
     Dates: start: 20060112, end: 20060301
  6. SORAFENIB [Suspect]
     Dates: start: 20060323, end: 20061001
  7. SUTENT [Concomitant]
     Dates: start: 20061120
  8. SOLUPRED [Concomitant]
  9. XANAX [Concomitant]
  10. LAROXYL [Concomitant]
  11. OMEPRAZOLE [Concomitant]
  12. MORPHINE [Concomitant]

REACTIONS (5)
  - CARCINOID TUMOUR PULMONARY [None]
  - OSTEONECROSIS [None]
  - PHLEBITIS INFECTIVE [None]
  - TOOTH EXTRACTION [None]
  - TOOTHACHE [None]
